FAERS Safety Report 19439758 (Version 1)
Quarter: 2021Q2

REPORT INFORMATION
  Report Type: Spontaneous
  Country: US (occurrence: US)
  Receive Date: 20210620
  Receipt Date: 20210620
  Transmission Date: 20210717
  Serious: No
  Sender: FDA-Public Use
  Company Number: US-CELGENEUS-USA-20210603110

PATIENT
  Sex: Female

DRUGS (1)
  1. POMALYST [Suspect]
     Active Substance: POMALIDOMIDE
     Indication: PLASMA CELL MYELOMA
     Dosage: 4  MILLIGRAM
     Route: 048
     Dates: start: 202009

REACTIONS (2)
  - Peripheral swelling [Not Recovered/Not Resolved]
  - Deafness [Not Recovered/Not Resolved]
